FAERS Safety Report 19763547 (Version 1)
Quarter: 2021Q3

REPORT INFORMATION
  Report Type: Spontaneous
  Country: TR (occurrence: TR)
  Receive Date: 20210830
  Receipt Date: 20210830
  Transmission Date: 20211014
  Serious: Yes (Other)
  Sender: FDA-Public Use
  Company Number: NVSC2021TR195082

PATIENT
  Age: 21 Year
  Sex: Male

DRUGS (1)
  1. TEGRETOL [Suspect]
     Active Substance: CARBAMAZEPINE
     Indication: CEREBRAL PALSY
     Dosage: 160 TABLET
     Route: 065

REACTIONS (3)
  - Product use in unapproved indication [Unknown]
  - Product supply issue [Unknown]
  - Seizure [Unknown]
